FAERS Safety Report 17648980 (Version 2)
Quarter: 2020Q2

REPORT INFORMATION
  Report Type: Report from Study
  Country: BR (occurrence: BR)
  Receive Date: 20200409
  Receipt Date: 20200619
  Transmission Date: 20200713
  Serious: Yes (Hospitalization, Other)
  Sender: FDA-Public Use
  Company Number: BR-UCBSA-2020014584

PATIENT
  Sex: Male
  Weight: 110 kg

DRUGS (5)
  1. PROFENID [Concomitant]
     Active Substance: KETOPROFEN
     Indication: PROCEDURAL PAIN
     Dosage: 100 MILLIGRAM, 2X/DAY (BID)
     Route: 048
     Dates: start: 20200319
  2. HYDROCHLOROTHIAZIDE. [Concomitant]
     Active Substance: HYDROCHLOROTHIAZIDE
     Indication: BLOOD PRESSURE ABNORMAL
     Dosage: 1 DOSAGE FORM, ONCE DAILY (QD)
     Route: 048
  3. DIPIRONA [Concomitant]
     Active Substance: METAMIZOLE
     Indication: PROCEDURAL PAIN
     Dosage: 1 DOSAGE FORM, 3X/DAY (TID)
     Route: 048
     Dates: start: 20200319
  4. AAS [Concomitant]
     Active Substance: ASPIRIN
     Indication: BLOOD PRESSURE ABNORMAL
     Dosage: 1 DOSAGE FORM, ONCE DAILY (QD)
     Route: 048
  5. CERTOLIZUMAB PEGOL ASP [Suspect]
     Active Substance: CERTOLIZUMAB PEGOL
     Indication: ANKYLOSING SPONDYLITIS
     Dosage: 400 MILLIGRAM, EV 30 DAYS
     Route: 058
     Dates: start: 2019, end: 20200220

REACTIONS (2)
  - Intracranial aneurysm [Recovered/Resolved]
  - Blood sodium decreased [Recovered/Resolved]

NARRATIVE: CASE EVENT DATE: 20191223
